FAERS Safety Report 7375415-2 (Version None)
Quarter: 2011Q1

REPORT INFORMATION
  Report Type: 
  Country: None (occurrence: None)
  Receive Date: 20110325
  Receipt Date: 20101209
  Transmission Date: 20110831
  Serious: Yes (Death, Other)
  Sender: FDA-Public Use
  Company Number: PHHO2010DE05322

PATIENT
  Sex: Male
  Weight: 72 kg

DRUGS (7)
  1. SIMULECT [Suspect]
     Indication: IMMUNOSUPPRESSION
     Dosage: 20MG
     Route: 042
     Dates: start: 20091019
  2. DECORTIN [Suspect]
     Indication: IMMUNOSUPPRESSION
     Dosage: 7.5
     Route: 048
     Dates: start: 20091019
  3. VANCOMYCIN [Concomitant]
  4. MERONEM [Concomitant]
  5. TACROLIMUS [Suspect]
     Indication: IMMUNOSUPPRESSION
     Dosage: 5MG
     Route: 048
     Dates: start: 20091019
  6. CELLCEPT [Suspect]
     Indication: IMMUNOSUPPRESSION
     Dosage: 1000MG TWICE DIALY
     Route: 048
     Dates: start: 20091019
  7. AVELOX [Concomitant]

REACTIONS (8)
  - RENAL FAILURE ACUTE [None]
  - SHOCK HAEMORRHAGIC [None]
  - GLOMERULONEPHRITIS [None]
  - ANEURYSM [None]
  - HAEMORRHAGIC ANAEMIA [None]
  - VENOUS INJURY [None]
  - THROMBOCYTOPENIA [None]
  - INTRA-ABDOMINAL HAEMORRHAGE [None]
